FAERS Safety Report 4597625-X (Version None)
Quarter: 2005Q1

REPORT INFORMATION
  Report Type: 
  Country: None (occurrence: None)
  Receive Date: 20050303
  Receipt Date: 20050218
  Transmission Date: 20050727
  Serious: Yes (Other)
  Sender: FDA-Public Use
  Company Number: DE-BRISTOL-MYERS SQUIBB COMPANY-12870275

PATIENT
  Age: 19 Year
  Sex: Female

DRUGS (2)
  1. ABILIFY [Suspect]
  2. CLOZAPINE [Suspect]

REACTIONS (1)
  - CONVULSION [None]
